FAERS Safety Report 8219155-6 (Version None)
Quarter: 2012Q1

REPORT INFORMATION
  Report Type: 
  Country: None (occurrence: None)
  Receive Date: 20120319
  Receipt Date: 20120313
  Transmission Date: 20120608
  Serious: No
  Sender: FDA-Public Use
  Company Number: US-PFIZER INC-2012046806

PATIENT
  Sex: Female
  Weight: 81.633 kg

DRUGS (5)
  1. LISINOPRIL [Concomitant]
     Indication: HYPERTENSION
     Dosage: 20 MG, 2X/DAY
  2. METFORMIN [Concomitant]
     Indication: DIABETES MELLITUS
     Dosage: 500 MG, 2X/DAY
  3. ACETYLSALICYLIC ACID [Concomitant]
     Indication: ANTICOAGULANT THERAPY
     Dosage: 81 MG, DAILY
  4. CELEBREX [Concomitant]
     Indication: ARTHRITIS
     Dosage: 200 MG, 2X/DAY
  5. PREMARIN [Suspect]
     Dosage: 1.25 MG DAILY
     Route: 048

REACTIONS (2)
  - VAGINAL DISORDER [None]
  - VAGINAL DISCHARGE [None]
